FAERS Safety Report 4820774-5 (Version None)
Quarter: 2005Q4

REPORT INFORMATION
  Report Type: 
  Country: None (occurrence: None)
  Receive Date: 20051104
  Receipt Date: 20050715
  Transmission Date: 20060501
  Serious: Yes (Hospitalization, Disabling)
  Sender: FDA-Public Use
  Company Number: JP-MERCK-0507USA03582

PATIENT
  Age: 79 Year
  Sex: Female

DRUGS (7)
  1. PEPCID [Suspect]
     Route: 048
     Dates: start: 20020909, end: 20050610
  2. PANALDINE [Concomitant]
     Route: 048
     Dates: start: 20020909, end: 20050610
  3. D-ALPHA [Concomitant]
     Route: 048
     Dates: start: 20020909, end: 20050610
  4. PREDONINE [Concomitant]
     Route: 048
     Dates: start: 20020909
  5. AZULFIDINE EN-TABS [Suspect]
     Route: 048
     Dates: start: 20041210, end: 20050218
  6. AZULFIDINE EN-TABS [Suspect]
     Route: 048
     Dates: start: 20050425, end: 20050610
  7. ETODOLAC [Suspect]
     Route: 048
     Dates: start: 20050419, end: 20050610

REACTIONS (2)
  - BLOOD ALKALINE PHOSPHATASE INCREASED [None]
  - BLOOD BILIRUBIN INCREASED [None]
